FAERS Safety Report 19875127 (Version 2)
Quarter: 2022Q1

REPORT INFORMATION
  Report Type: Spontaneous
  Country: CA (occurrence: CA)
  Receive Date: 20210923
  Receipt Date: 20220111
  Transmission Date: 20220423
  Serious: Yes (Other)
  Sender: FDA-Public Use
  Company Number: CA-TEVA-2021-CA-1956296

PATIENT
  Age: 53 Year
  Sex: Female

DRUGS (7)
  1. EXEMESTANE [Suspect]
     Active Substance: EXEMESTANE
     Indication: Breast cancer
     Route: 065
  2. EXEMESTANE [Suspect]
     Active Substance: EXEMESTANE
     Route: 065
  3. TAMOXIFEN CITRATE [Suspect]
     Active Substance: TAMOXIFEN CITRATE
     Indication: Breast cancer
     Route: 048
  4. AFINITOR [Suspect]
     Active Substance: EVEROLIMUS
     Indication: Breast cancer
     Route: 065
  5. AFINITOR [Suspect]
     Active Substance: EVEROLIMUS
     Route: 065
  6. FASLODEX [Suspect]
     Active Substance: FULVESTRANT
     Indication: Malignant neoplasm progression
     Route: 030
  7. IBRANCE [Suspect]
     Active Substance: PALBOCICLIB
     Indication: Product used for unknown indication
     Route: 065

REACTIONS (4)
  - Malignant neoplasm progression [Unknown]
  - Metastases to liver [Unknown]
  - Metastases to lung [Unknown]
  - Drug ineffective [Unknown]
